FAERS Safety Report 5662405-0 (Version None)
Quarter: 2008Q1

REPORT INFORMATION
  Report Type: 
  Country: None (occurrence: None)
  Receive Date: 20080313
  Receipt Date: 20080303
  Transmission Date: 20080703
  Serious: Yes (Other)
  Sender: FDA-Public Use
  Company Number: US-JNJFOC-20080300872

PATIENT
  Sex: Male
  Weight: 77.11 kg

DRUGS (7)
  1. DURAGESIC-100 [Suspect]
     Route: 062
  2. DURAGESIC-100 [Suspect]
     Route: 062
  3. DURAGESIC-100 [Suspect]
     Route: 062
  4. DURAGESIC-100 [Suspect]
     Dosage: 100UG/HR AND 25UG/HR
     Route: 062
  5. DURAGESIC-100 [Suspect]
     Indication: PAIN
     Dosage: 1 X 100MCG AND 1 X 50 MCG
     Route: 062
  6. CHANTIX [Concomitant]
     Indication: SMOKING CESSATION THERAPY
     Route: 048
  7. SEROQUEL [Concomitant]
     Indication: SLEEP DISORDER
     Route: 048

REACTIONS (4)
  - HYPERTENSION [None]
  - HYPOTENSION [None]
  - ULNAR NERVE INJURY [None]
  - WITHDRAWAL SYNDROME [None]
